FAERS Safety Report 5108296-8 (Version None)
Quarter: 2006Q3

REPORT INFORMATION
  Report Type: 
  Country: None (occurrence: None)
  Receive Date: 20060914
  Receipt Date: 20060914
  Transmission Date: 20061208
  Serious: Yes (Hospitalization, Other)
  Sender: FDA-Public Use
  Company Number: None

PATIENT
  Age: 63 Year
  Sex: Female
  Weight: 77.1115 kg

DRUGS (1)
  1. FOSAMAX [Suspect]
     Indication: BREAST CANCER
     Dosage: 70 MG WEEKLY PO
     Route: 048
     Dates: start: 20060508, end: 20060913

REACTIONS (3)
  - DISEASE RECURRENCE [None]
  - MENINGIOMA [None]
  - SPINAL CORD DISORDER [None]
